FAERS Safety Report 19967756 (Version 1)
Quarter: 2021Q4

REPORT INFORMATION
  Report Type: Spontaneous
  Country: US (occurrence: US)
  Receive Date: 20211015
  Receipt Date: 20211015
  Transmission Date: 20220303
  Serious: Yes (Hospitalization)
  Sender: FDA-Public Use
  Company Number: None

PATIENT
  Age: 71 Year
  Sex: Male
  Weight: 54.88 kg

DRUGS (1)
  1. DIPHENHYDRAMINE HYDROCHLORIDE\IBUPROFEN [Suspect]
     Active Substance: DIPHENHYDRAMINE HYDROCHLORIDE\IBUPROFEN
     Indication: Pain
     Dates: start: 20200701, end: 20210706

REACTIONS (14)
  - Haematochezia [None]
  - Faeces discoloured [None]
  - Abdominal pain [None]
  - Abdominal pain upper [None]
  - Toothache [None]
  - Gastric ulcer [None]
  - Duodenal ulcer [None]
  - Ulcer haemorrhage [None]
  - Dizziness [None]
  - Diarrhoea [None]
  - Hypotension [None]
  - Dizziness [None]
  - Acute kidney injury [None]
  - Haematochezia [None]

NARRATIVE: CASE EVENT DATE: 20210706
